FAERS Safety Report 24992341 (Version 2)
Quarter: 2025Q2

REPORT INFORMATION
  Report Type: Spontaneous
  Country: PK (occurrence: PK)
  Receive Date: 20250220
  Receipt Date: 20250421
  Transmission Date: 20250717
  Serious: Yes (Other)
  Sender: AMGEN
  Company Number: PK-PFIZER INC-PV202500018441

PATIENT
  Age: 36 Year
  Sex: Female

DRUGS (1)
  1. ENBREL [Suspect]
     Active Substance: ETANERCEPT
     Indication: Ankylosing spondylitis
     Dosage: 50 MILLIGRAM, QWK
     Route: 058
     Dates: start: 202310

REACTIONS (2)
  - Blood pressure increased [Unknown]
  - Red blood cell sedimentation rate increased [Unknown]
